FAERS Safety Report 23545401 (Version 3)
Quarter: 2024Q3

REPORT INFORMATION
  Report Type: Spontaneous
  Country: US (occurrence: US)
  Receive Date: 20240220
  Receipt Date: 20240726
  Transmission Date: 20241016
  Serious: No
  Sender: BLUEPRINT MEDICINES
  Company Number: US-Blueprint Medicines Corporation-2413

PATIENT
  Sex: Female

DRUGS (3)
  1. AYVAKIT [Suspect]
     Active Substance: AVAPRITINIB
     Indication: Gastrointestinal stromal tumour
     Route: 065
     Dates: start: 20230220
  2. AYVAKIT [Suspect]
     Active Substance: AVAPRITINIB
     Route: 065
     Dates: start: 20230220
  3. AYVAKIT [Suspect]
     Active Substance: AVAPRITINIB
     Route: 065
     Dates: start: 20230220

REACTIONS (10)
  - Erythema [Unknown]
  - Drug eruption [Unknown]
  - Condition aggravated [Unknown]
  - Skin irritation [Unknown]
  - Rash macular [Unknown]
  - Rash pruritic [Unknown]
  - White blood cell count decreased [Unknown]
  - Dry skin [Unknown]
  - Skin haemorrhage [Unknown]
  - Nausea [Unknown]
